FAERS Safety Report 5846875-0 (Version None)
Quarter: 2008Q3

REPORT INFORMATION
  Report Type: 
  Country: None (occurrence: None)
  Receive Date: 20080815
  Receipt Date: 20080814
  Transmission Date: 20090109
  Serious: Yes (Death)
  Sender: FDA-Public Use
  Company Number: US-ASTRAZENECA-2008UW16157

PATIENT
  Age: 67 Year
  Sex: Male
  Weight: 113.4 kg

DRUGS (5)
  1. NEXIUM [Suspect]
     Indication: GASTROOESOPHAGEAL REFLUX DISEASE
     Route: 048
  2. NEXIUM [Suspect]
     Route: 048
  3. ZANTAC [Concomitant]
     Indication: GASTROOESOPHAGEAL REFLUX DISEASE
  4. DEMEROL [Concomitant]
  5. LORTAB OR VICODIN [Concomitant]

REACTIONS (7)
  - ANOREXIA [None]
  - DIZZINESS [None]
  - EXCORIATION [None]
  - GASTROINTESTINAL DISORDER [None]
  - LOSS OF CONSCIOUSNESS [None]
  - MALAISE [None]
  - PEPTIC ULCER HAEMORRHAGE [None]
